FAERS Safety Report 11468650 (Version 1)
Quarter: 2015Q3

REPORT INFORMATION
  Report Type: Spontaneous
  Country: US (occurrence: None)
  Receive Date: 20150904
  Receipt Date: 20150904
  Transmission Date: 20151125
  Serious: No
  Sender: FDA-Public Use
  Company Number: None

PATIENT
  Sex: Female

DRUGS (1)
  1. METHOTREXATE [Suspect]
     Active Substance: METHOTREXATE
     Indication: PSORIASIS
     Dosage: 8 TABS Q 1 WEEK
     Route: 048
     Dates: start: 20150820

REACTIONS (3)
  - Psoriasis [None]
  - Arthropod bite [None]
  - Infection [None]
